FAERS Safety Report 25917202 (Version 1)
Quarter: 2025Q4

REPORT INFORMATION
  Report Type: Spontaneous
  Country: EU (occurrence: EU)
  Receive Date: 20251014
  Receipt Date: 20251014
  Transmission Date: 20260117
  Serious: Yes (Hospitalization, Other)
  Sender: AUROBINDO
  Company Number: EU-JNJFOC-20250908865

PATIENT
  Age: 68 Year
  Sex: Female
  Weight: 53 kg

DRUGS (16)
  1. BORTEZOMIB [Suspect]
     Active Substance: BORTEZOMIB
     Indication: Plasma cell myeloma
     Dosage: 1.3 MILLIGRAM/SQ. METER (MOST RECENT DOSE ADMINISTERED ON 6-JUL-2020)
     Route: 058
     Dates: start: 20191014, end: 20200706
  2. LENALIDOMIDE [Suspect]
     Active Substance: LENALIDOMIDE
     Indication: Plasma cell myeloma
     Dosage: 25 MILLIGRAM (THERAPY END DATE ; 02-FEB-2020)
     Route: 048
     Dates: start: 20191014, end: 20200202
  3. LENALIDOMIDE [Suspect]
     Active Substance: LENALIDOMIDE
     Dosage: 20 MILLIGRAM (THERAPY END DATE ; 26-JUL-2020)
     Route: 048
     Dates: start: 20200608, end: 20200726
  4. LENALIDOMIDE [Suspect]
     Active Substance: LENALIDOMIDE
     Dosage: 10 MILLIGRAM (LAST DOSE ADMINISTERED ON 02-SEP-2025)
     Route: 048
     Dates: start: 20200810, end: 20250901
  5. LENALIDOMIDE [Suspect]
     Active Substance: LENALIDOMIDE
     Dates: start: 20250902
  6. DEXAMETHASONE [Suspect]
     Active Substance: DEXAMETHASONE
     Indication: Plasma cell myeloma
     Dosage: 40 MILLIGRAM (MOST RECENT DOSE ADMINISTERED ON 17-JUL-2020)
     Route: 048
     Dates: start: 20191014, end: 20200717
  7. TOLODODEKIN ALFA [Suspect]
     Active Substance: TOLODODEKIN ALFA
     Indication: Plasma cell myeloma
     Dosage: 1800 MILLIGRAM (MOST RECENT DOSE ADMINISTERED ON 03-OCT-2022.)
     Route: 058
     Dates: start: 20191014, end: 20221003
  8. DESFESOTERODINE [Concomitant]
     Active Substance: DESFESOTERODINE
     Indication: Hypertonic bladder
     Dosage: 3.5 MILLIGRAM, ONCE A DAY
     Route: 048
  9. ASPIRIN [Concomitant]
     Active Substance: ASPIRIN
     Indication: Thrombosis prophylaxis
     Dosage: 100 MILLIGRAM, ONCE A DAY
     Route: 048
  10. NEUPOGEN [Concomitant]
     Active Substance: FILGRASTIM
     Indication: Prophylaxis
     Dosage: 300 MICROGRAM (1 WEEK)
     Route: 058
  11. CALCIUM [Concomitant]
     Active Substance: CALCIUM
     Indication: Osteoporosis prophylaxis
     Dosage: 100 MICROGRAM, ONCE A DAY
     Route: 048
     Dates: start: 20191021
  12. FLEBOGAMMA [Concomitant]
     Active Substance: HUMAN IMMUNOGLOBULIN G
     Indication: Hypogammaglobulinaemia
     Dosage: 25 GRAM
     Route: 042
     Dates: start: 20220118
  13. FAMOTIDINE [Concomitant]
     Active Substance: FAMOTIDINE
     Indication: Gastrointestinal disorder therapy
     Dosage: 20 MICROGRAM, ONCE A DAY
     Route: 048
     Dates: start: 20250327
  14. POTASSIUM [Concomitant]
     Active Substance: POTASSIUM
     Indication: Mineral supplementation
     Dosage: 600 MICROGRAM, 3 TIMES A DAY
     Route: 048
     Dates: start: 20211129
  15. MAGNESIUM [Concomitant]
     Active Substance: MAGNESIUM
     Indication: Blood magnesium
     Dosage: 48.62 MILLIGRAM, TWO TIMES A DAY
     Route: 048
     Dates: start: 20200720
  16. LORAZEPAM [Concomitant]
     Active Substance: LORAZEPAM
     Indication: Insomnia
     Dosage: 1 MILLIGRAM, ONCE A DAY
     Route: 048
     Dates: start: 2013

REACTIONS (3)
  - Pneumonia [Recovered/Resolved]
  - Staphylococcal bacteraemia [Unknown]
  - COVID-19 [Unknown]

NARRATIVE: CASE EVENT DATE: 20250901
